FAERS Safety Report 6047236-4 (Version None)
Quarter: 2009Q1

REPORT INFORMATION
  Report Type: 
  Country: None (occurrence: None)
  Receive Date: 20090121
  Receipt Date: 20080820
  Transmission Date: 20090719
  Serious: No
  Sender: FDA-Public Use
  Company Number: A-NJ2008-21638

PATIENT
  Age: 71 Year
  Sex: Female

DRUGS (4)
  1. TRACLEER [Suspect]
     Indication: PULMONARY ARTERIAL HYPERTENSION
     Dosage: 62.5 MG, BID, ORAL : 125 MG, SINGLE, ORAL
     Route: 048
     Dates: start: 20080701, end: 20080819
  2. TRACLEER [Suspect]
     Indication: PULMONARY ARTERIAL HYPERTENSION
     Dosage: 62.5 MG, BID, ORAL : 125 MG, SINGLE, ORAL
     Route: 048
     Dates: start: 20080820, end: 20080820
  3. LASIX [Concomitant]
  4. SPIRONOLACTONE [Concomitant]

REACTIONS (3)
  - CONDITION AGGRAVATED [None]
  - ERYTHEMA [None]
  - OEDEMA PERIPHERAL [None]
